FAERS Safety Report 8065474-6 (Version None)
Quarter: 2012Q1

REPORT INFORMATION
  Report Type: 
  Country: None (occurrence: None)
  Receive Date: 20120117
  Receipt Date: 20120104
  Transmission Date: 20120608
  Serious: Yes (Other)
  Sender: FDA-Public Use
  Company Number: 7103915

PATIENT
  Age: 11 Year
  Sex: Male

DRUGS (3)
  1. LEVOTHYROXINE SODIUM [Suspect]
     Indication: THYROID DISORDER
     Dosage: 1 IN 1 D
     Dates: start: 20111210, end: 20111225
  2. LEVOTHYROXINE SODIUM [Suspect]
     Indication: THYROID DISORDER
     Dosage: 1 IN 1 D
     Dates: start: 20111227
  3. ALEGRA (ALLEGRA) (FEXOFENADINE) [Concomitant]

REACTIONS (2)
  - ASTHMATIC CRISIS [None]
  - HYPERSENSITIVITY [None]
